FAERS Safety Report 8975256 (Version 1)
Quarter: 2012Q4

REPORT INFORMATION
  Report Type: 
  Country: IT (occurrence: IT)
  Receive Date: 20121220
  Receipt Date: 20121220
  Transmission Date: 20130627
  Serious: Yes (Other)
  Sender: FDA-Public Use
  Company Number: IT-SANOFI-AVENTIS-2012SA089329

PATIENT
  Age: 82 Year
  Sex: Female

DRUGS (8)
  1. PLAVIX [Suspect]
     Indication: CEREBROVASCULAR ACCIDENT PROPHYLAXIS
     Route: 048
     Dates: start: 20121112, end: 20121115
  2. BISOPROLOL HEMIFUMARATE [Concomitant]
  3. VALSARTAN [Concomitant]
  4. PANTOPRAZOLE SODIUM [Concomitant]
  5. DELTACORTENE [Concomitant]
  6. LASIX [Concomitant]
  7. DEDRALEN [Concomitant]
  8. DIAMICRON [Concomitant]

REACTIONS (3)
  - Intestinal obstruction [Unknown]
  - Abdominal pain [Unknown]
  - Flatulence [Unknown]
